FAERS Safety Report 15393573 (Version 1)
Quarter: 2018Q3

REPORT INFORMATION
  Report Type: Spontaneous
  Country: PT (occurrence: PT)
  Receive Date: 20180917
  Receipt Date: 20180917
  Transmission Date: 20181010
  Serious: Yes (Hospitalization)
  Sender: FDA-Public Use
  Company Number: PT-MYLANLABS-2018M1068023

PATIENT
  Age: 70 Year
  Sex: Female

DRUGS (8)
  1. VANCOMYCIN [Suspect]
     Active Substance: VANCOMYCIN
     Route: 065
     Dates: start: 201607
  2. FIDAXOMICIN [Suspect]
     Active Substance: FIDAXOMICIN
     Route: 065
     Dates: start: 201605
  3. VANCOMYCIN [Suspect]
     Active Substance: VANCOMYCIN
     Route: 065
     Dates: start: 201606
  4. FIDAXOMICIN [Suspect]
     Active Substance: FIDAXOMICIN
     Indication: CLOSTRIDIUM DIFFICILE COLITIS
     Route: 065
     Dates: start: 201603
  5. VANCOMYCIN [Suspect]
     Active Substance: VANCOMYCIN
     Route: 065
     Dates: start: 201608
  6. METRONIDAZOLE. [Suspect]
     Active Substance: METRONIDAZOLE
     Indication: CLOSTRIDIUM DIFFICILE COLITIS
     Route: 065
     Dates: start: 201607
  7. NITROFURANTOIN. [Suspect]
     Active Substance: NITROFURANTOIN
     Indication: URINARY TRACT INFECTION
     Route: 065
     Dates: start: 201604
  8. VANCOMYCIN [Suspect]
     Active Substance: VANCOMYCIN
     Indication: CLOSTRIDIUM DIFFICILE COLITIS
     Route: 065
     Dates: start: 201603

REACTIONS (2)
  - Pseudomembranous colitis [Recovered/Resolved]
  - Clostridium difficile infection [Recovered/Resolved]
